FAERS Safety Report 5759885-9 (Version None)
Quarter: 2008Q2

REPORT INFORMATION
  Report Type: 
  Country: None (occurrence: None)
  Receive Date: 20080605
  Receipt Date: 20080603
  Transmission Date: 20081010
  Serious: Yes (Death)
  Sender: FDA-Public Use
  Company Number: PHEH2008US05011

PATIENT
  Sex: Male

DRUGS (1)
  1. ELIDEL [Suspect]
     Indication: ECZEMA
     Dosage: UNK
     Route: 061

REACTIONS (6)
  - ANXIETY [None]
  - DEPRESSED MOOD [None]
  - EMOTIONAL DISTRESS [None]
  - INJURY [None]
  - MYCOSIS FUNGOIDES [None]
  - PAIN [None]
